FAERS Safety Report 9160309 (Version 1)
Quarter: 2013Q1

REPORT INFORMATION
  Report Type: Spontaneous
  Country: JP (occurrence: None)
  Receive Date: 20130220
  Receipt Date: 20130220
  Transmission Date: 20140127
  Serious: Yes (Other)
  Sender: FDA-Public Use
  Company Number: JP-010921

PATIENT
  Age: 85 Year
  Sex: Male

DRUGS (1)
  1. DEGARELIX (GONAX) 240 MG [Suspect]
     Indication: PROSTATE CANCER
     Route: 058
     Dates: start: 20130207, end: 20130207

REACTIONS (3)
  - Melaena [None]
  - Haematemesis [None]
  - Blood pressure decreased [None]
